FAERS Safety Report 21221568 (Version 2)
Quarter: 2022Q4

REPORT INFORMATION
  Report Type: Spontaneous
  Country: NL (occurrence: NL)
  Receive Date: 20220817
  Receipt Date: 20221010
  Transmission Date: 20230113
  Serious: Yes (Death, Life-Threatening, Hospitalization, Other)
  Sender: FDA-Public Use
  Company Number: NL-Accord-273268

PATIENT
  Age: 23 Year
  Sex: Male

DRUGS (2)
  1. CLOZAPINE [Suspect]
     Active Substance: CLOZAPINE
     Indication: Psychotic disorder
     Dosage: INCREASED WITH 25 MG/D EVERY 2?DAYS, 50MG AT DAY 6, 7MG AT DAY 8, 100 MG DAYS
     Route: 048
  2. OLANZAPINE [Suspect]
     Active Substance: OLANZAPINE
     Indication: Psychotic disorder
     Dosage: INCREASE FROM 20MG DAYS 1-17, 15 MG AT DAYS 21-23 TO 25MG
     Route: 048

REACTIONS (12)
  - Intestinal pseudo-obstruction [Fatal]
  - Off label use [Unknown]
  - Hypovolaemia [Fatal]
  - Heart sounds abnormal [Recovered/Resolved]
  - Multiple organ dysfunction syndrome [Fatal]
  - Acute kidney injury [Fatal]
  - Gastrointestinal hypomotility [Fatal]
  - Hepatic failure [Fatal]
  - Rhabdomyolysis [Fatal]
  - Pulse absent [Recovered/Resolved]
  - Faecaloma [Not Recovered/Not Resolved]
  - Vasoplegia syndrome [Fatal]
